FAERS Safety Report 11513837 (Version 1)
Quarter: 2015Q3

REPORT INFORMATION
  Report Type: Spontaneous
  Country: US (occurrence: US)
  Receive Date: 20150903
  Receipt Date: 20150903
  Transmission Date: 20151125
  Serious: No
  Sender: FDA-Public Use
  Company Number: US-ELI_LILLY_AND_COMPANY-US201211009221

PATIENT
  Age: 52 Year
  Sex: Female

DRUGS (7)
  1. CYMBALTA [Suspect]
     Active Substance: DULOXETINE HYDROCHLORIDE
     Indication: DEPRESSION
     Dosage: 60 MG, QD
     Dates: start: 20120927
  2. FLURAZEPAM [Concomitant]
     Active Substance: FLURAZEPAM\FLURAZEPAM HYDROCHLORIDE
     Indication: INSOMNIA
  3. GARLIC. [Concomitant]
     Active Substance: GARLIC
  4. LORAZEPAM. [Concomitant]
     Active Substance: LORAZEPAM
  5. PROBIOTICS [Concomitant]
     Active Substance: PROBIOTICS NOS
  6. ZIPRASIDONE. [Concomitant]
     Active Substance: ZIPRASIDONE
  7. WILD YAM [Concomitant]

REACTIONS (4)
  - Micturition disorder [Unknown]
  - Diarrhoea [Not Recovered/Not Resolved]
  - Hypoaesthesia [Unknown]
  - Anxiety [Not Recovered/Not Resolved]
